FAERS Safety Report 8812632 (Version 2)
Quarter: 2012Q4

REPORT INFORMATION
  Report Type: 
  Country: MX (occurrence: MX)
  Receive Date: 20120927
  Receipt Date: 20121008
  Transmission Date: 20130627
  Serious: Yes (Hospitalization, Other)
  Sender: FDA-Public Use
  Company Number: PHHY2012MX084301

PATIENT
  Age: 66 Year
  Sex: Male

DRUGS (2)
  1. CO-DIOVAN [Suspect]
     Indication: HYPERTENSION
     Dosage: 1 DF (vals 160 mg, hydr 12.5 mg), daily
     Dates: start: 201108
  2. ALCARET [Concomitant]

REACTIONS (2)
  - Hypothyroidism [Not Recovered/Not Resolved]
  - Mental disorder [Unknown]
